FAERS Safety Report 8839354 (Version 1)
Quarter: 2012Q4

REPORT INFORMATION
  Report Type: Spontaneous
  Country: US (occurrence: None)
  Receive Date: 20121012
  Receipt Date: 20121012
  Transmission Date: 20130627
  Serious: Yes (Other)
  Sender: FDA-Public Use
  Company Number: None

PATIENT
  Age: 19 Year
  Sex: Female
  Weight: 59.88 kg

DRUGS (6)
  1. HECORIA [Suspect]
     Indication: PROPHYLAXIS AGAINST RENAL TRANSPLANT REJECTION
     Dosage: 4mg BID po
     Route: 048
     Dates: start: 20120707, end: 20120917
  2. MYFORTIC [Suspect]
     Indication: PROPHYLAXIS AGAINST RENAL TRANSPLANT REJECTION
     Dosage: 720mg BID po
     Route: 048
     Dates: start: 20120716
  3. MANGESIUM OXIDE [Concomitant]
  4. MIRALAX [Concomitant]
  5. OMEPRAZOLE [Concomitant]
  6. ERGOCALCIFEROL [Concomitant]

REACTIONS (4)
  - Product substitution issue [None]
  - Rash morbilliform [None]
  - Lichenoid keratosis [None]
  - Drug eruption [None]
